FAERS Safety Report 17902236 (Version 1)
Quarter: 2020Q2

REPORT INFORMATION
  Report Type: Spontaneous
  Country: FR (occurrence: FR)
  Receive Date: 20200616
  Receipt Date: 20200616
  Transmission Date: 20200714
  Serious: Yes (Death, Other)
  Sender: FDA-Public Use
  Company Number: FR-009507513-2006FRA004169

PATIENT
  Age: 27 Year
  Sex: Female

DRUGS (7)
  1. RITODRINE [Suspect]
     Active Substance: RITODRINE
     Indication: THREATENED LABOUR
     Dosage: 40 MILLIGRAM, QD;
     Route: 048
  2. BETAMETHASONE SODIUM PHOSPHATE [Suspect]
     Active Substance: BETAMETHASONE SODIUM PHOSPHATE
     Indication: MATERNAL THERAPY TO ENHANCE FOETAL LUNG MATURITY
     Dosage: 12 MG X 2 AT 31 WEEK
     Route: 030
  3. CHLORMADINONE ACETATE [Suspect]
     Active Substance: CHLORMADINONE ACETATE
     Indication: THREATENED LABOUR
     Dosage: 25 MILLIGRAM, QD
  4. BETAMETHASONE SODIUM PHOSPHATE [Suspect]
     Active Substance: BETAMETHASONE SODIUM PHOSPHATE
     Dosage: A REPEAT DOSE 1 WK LATER
     Route: 030
  5. ALBUTEROL. [Suspect]
     Active Substance: ALBUTEROL
     Indication: THREATENED LABOUR
     Dosage: 100 MILLIGRAM, QD
     Route: 042
  6. ANTIMICROBIAL (UNSPECIFIED) [Suspect]
     Active Substance: UNSPECIFIED INGREDIENT
     Indication: INFECTION PROPHYLAXIS
     Dosage: 2 MILLIGRAM, QD
     Route: 048
  7. RITODRINE [Suspect]
     Active Substance: RITODRINE
     Indication: THREATENED LABOUR
     Dosage: 400 MILLIGRAM, QD
     Route: 042

REACTIONS (3)
  - Exposure during pregnancy [Recovered/Resolved]
  - Cardiac failure [Fatal]
  - Product use in unapproved indication [Unknown]
